FAERS Safety Report 8570399-3 (Version None)
Quarter: 2012Q3

REPORT INFORMATION
  Report Type: 
  Country: None (occurrence: None)
  Receive Date: 20120803
  Receipt Date: 20120725
  Transmission Date: 20120928
  Serious: Yes (Hospitalization, Other)
  Sender: FDA-Public Use
  Company Number: US-ABBOTT-12P-163-0960768-00

PATIENT
  Sex: Female
  Weight: 63.56 kg

DRUGS (3)
  1. HUMIRA [Suspect]
     Indication: CROHN'S DISEASE
     Dates: start: 20020101, end: 20120401
  2. EFFEXOR [Concomitant]
     Indication: DEPRESSION
  3. WELCHOL [Concomitant]
     Indication: CROHN'S DISEASE

REACTIONS (10)
  - ABDOMINAL PAIN UPPER [None]
  - ASTHENIA [None]
  - CORONARY ARTERY OCCLUSION [None]
  - CHEST PAIN [None]
  - BLOOD POTASSIUM DECREASED [None]
  - ULCER HAEMORRHAGE [None]
  - HAEMATOCHEZIA [None]
  - MYOCARDIAL INFARCTION [None]
  - CROHN'S DISEASE [None]
  - VOMITING [None]
